FAERS Safety Report 15216613 (Version 8)
Quarter: 2019Q3

REPORT INFORMATION
  Report Type: Spontaneous
  Country: US (occurrence: US)
  Receive Date: 20180730
  Receipt Date: 20190829
  Transmission Date: 20191004
  Serious: No
  Sender: FDA-Public Use
  Company Number: US-PFIZER INC-2018305466

PATIENT
  Age: 56 Year
  Sex: Male

DRUGS (1)
  1. LYRICA [Suspect]
     Active Substance: PREGABALIN
     Indication: DRUG THERAPY
     Dosage: 200 MG, 3X/DAY (EVERY 8 HOURS)
     Route: 048

REACTIONS (7)
  - Intentional product use issue [Unknown]
  - Hyperhidrosis [Unknown]
  - Feeling jittery [Unknown]
  - Withdrawal syndrome [Unknown]
  - Pain [Unknown]
  - Tremor [Unknown]
  - Pain in extremity [Unknown]
